FAERS Safety Report 14030500 (Version 1)
Quarter: 2017Q4

REPORT INFORMATION
  Report Type: Report from Study
  Country: None (occurrence: IT)
  Receive Date: 20171002
  Receipt Date: 20171002
  Transmission Date: 20180321
  Serious: Yes (Other)
  Sender: FDA-Public Use
  Company Number: IT-ABBVIE-17K-083-2114109-00

PATIENT
  Sex: Female

DRUGS (1)
  1. HUMIRA [Suspect]
     Active Substance: ADALIMUMAB
     Indication: PSORIATIC ARTHROPATHY
     Route: 058
     Dates: start: 20170704

REACTIONS (2)
  - Pleural disorder [Not Recovered/Not Resolved]
  - Pericarditis [Not Recovered/Not Resolved]

NARRATIVE: CASE EVENT DATE: 2017
